FAERS Safety Report 7762871-0 (Version None)
Quarter: 2011Q3

REPORT INFORMATION
  Report Type: 
  Country: None (occurrence: None)
  Receive Date: 20110920
  Receipt Date: 20110907
  Transmission Date: 20111222
  Serious: Yes (Hospitalization)
  Sender: FDA-Public Use
  Company Number: DE-KINGPHARMUSA00001-K201101041

PATIENT
  Age: 74 Year
  Sex: Female

DRUGS (13)
  1. LEVOXYL [Suspect]
     Dosage: 150 MCG, QD
     Route: 048
  2. LEVOXYL [Suspect]
     Dosage: 200 MCG, QD
     Route: 048
  3. LEVOXYL [Suspect]
     Indication: DEPRESSION
     Dosage: 300 MCG, QD
     Route: 048
  4. ALTACE [Concomitant]
     Dosage: 5 MG, QD
     Route: 048
  5. LEVOXYL [Suspect]
     Dosage: 50 MCG, QD
     Route: 048
  6. LITHIUM CARBONATE [Concomitant]
     Indication: DEPRESSION
  7. VENLAFAXINE HYDROCHLORIDE [Concomitant]
     Indication: DEPRESSION
     Dosage: 150 MG, QD
     Route: 048
  8. LEVOXYL [Suspect]
     Dosage: 100 MCG, QD
     Route: 048
  9. TRANYLCYPROMINE SULFATE [Suspect]
     Dosage: 40 MG, QD
     Route: 048
  10. LEVOXYL [Suspect]
     Dosage: 350 MCG/G, QD
     Route: 048
  11. TRANYLCYPROMINE SULFATE [Suspect]
     Indication: DEPRESSION
     Dosage: 60 MG, QD
     Route: 048
  12. LEVOXYL [Suspect]
     Dosage: 250 MCG, QD
     Route: 048
  13. SIMVASTATIN [Concomitant]
     Dosage: 20 MG, QD

REACTIONS (8)
  - CHEST DISCOMFORT [None]
  - MYOCARDIAL INFARCTION [None]
  - DYSPNOEA [None]
  - FEELING ABNORMAL [None]
  - DRUG INTERACTION [None]
  - HYPERTHYROIDISM [None]
  - HYPERHIDROSIS [None]
  - NERVOUSNESS [None]
